FAERS Safety Report 16008929 (Version 3)
Quarter: 2019Q2

REPORT INFORMATION
  Report Type: Spontaneous
  Country: JP (occurrence: JP)
  Receive Date: 20190226
  Receipt Date: 20190426
  Transmission Date: 20190711
  Serious: Yes (Life-Threatening, Hospitalization)
  Sender: FDA-Public Use
  Company Number: JP-009507513-1902JPN002145J

PATIENT
  Age: 69 Year
  Sex: Male
  Weight: 50 kg

DRUGS (9)
  1. LOXOPROFEN [Concomitant]
     Active Substance: LOXOPROFEN
     Indication: NON-SMALL CELL LUNG CANCER
     Dosage: 60 MILLIGRAM, TID
     Route: 048
     Dates: start: 20190110
  2. KEYTRUDA [Suspect]
     Active Substance: PEMBROLIZUMAB
     Indication: NON-SMALL CELL LUNG CANCER
     Dosage: 200 MILLIGRAM, Q3W
     Route: 041
     Dates: start: 20190205, end: 20190205
  3. MAGNESIUM OXIDE. [Concomitant]
     Active Substance: MAGNESIUM OXIDE
     Dosage: 250 MILLIGRAM, TID
     Route: 048
     Dates: start: 20190119
  4. LYRICA [Concomitant]
     Active Substance: PREGABALIN
     Indication: NON-SMALL CELL LUNG CANCER
     Dosage: 150 MILLIGRAM, BID
     Route: 048
     Dates: start: 20190116
  5. OXYCODONE [Concomitant]
     Active Substance: OXYCODONE
     Indication: NON-SMALL CELL LUNG CANCER
     Dosage: 5-10 MG, BID
     Route: 048
     Dates: start: 20190119
  6. ABRAXANE [Concomitant]
     Active Substance: PACLITAXEL
     Indication: NON-SMALL CELL LUNG CANCER
     Dosage: 150 MILLIGRAM
     Route: 041
     Dates: start: 20190205, end: 20190212
  7. CARBOPLATIN. [Concomitant]
     Active Substance: CARBOPLATIN
     Indication: NON-SMALL CELL LUNG CANCER
     Dosage: 440 MILLIGRAM
     Route: 041
     Dates: start: 20190205, end: 20190205
  8. DEXAMETHASONE. [Concomitant]
     Active Substance: DEXAMETHASONE
     Indication: NON-SMALL CELL LUNG CANCER
     Dosage: 4.95-4 MG
     Route: 048
     Dates: start: 20190205, end: 20190208
  9. EMEND [Concomitant]
     Active Substance: APREPITANT
     Indication: NON-SMALL CELL LUNG CANCER
     Dosage: 80-125 MG
     Route: 048
     Dates: start: 20190205, end: 20190207

REACTIONS (1)
  - Liver disorder [Recovering/Resolving]

NARRATIVE: CASE EVENT DATE: 20190220
